FAERS Safety Report 8217992-5 (Version None)
Quarter: 2012Q1

REPORT INFORMATION
  Report Type: 
  Country: None (occurrence: None)
  Receive Date: 20120319
  Receipt Date: 20120313
  Transmission Date: 20120608
  Serious: Yes (Other)
  Sender: FDA-Public Use
  Company Number: BR-PFIZER INC-2012066989

PATIENT
  Sex: Female

DRUGS (2)
  1. XALATAN [Suspect]
     Indication: GLAUCOMA
  2. XALATAN [Suspect]
     Indication: CATARACT
     Dosage: 1.5 UG, 1X/DAY
     Route: 047
     Dates: start: 20090101

REACTIONS (2)
  - GLAUCOMA [None]
  - CATARACT [None]
